FAERS Safety Report 7693618-4 (Version None)
Quarter: 2011Q3

REPORT INFORMATION
  Report Type: 
  Country: None (occurrence: None)
  Receive Date: 20110819
  Receipt Date: 20110809
  Transmission Date: 20111222
  Serious: Yes (Other)
  Sender: FDA-Public Use
  Company Number: US-AMGEN-USASP2011040490

PATIENT
  Sex: Female

DRUGS (1)
  1. ENBREL [Suspect]
     Indication: RHEUMATOID ARTHRITIS
     Dosage: 50 MG, QWK
     Dates: start: 19980101

REACTIONS (13)
  - DEPRESSION [None]
  - BLOOD SODIUM DECREASED [None]
  - HYPOTENSION [None]
  - WEIGHT DECREASED [None]
  - ARTHRALGIA [None]
  - SINUSITIS [None]
  - HYPOTHYROIDISM [None]
  - DECREASED APPETITE [None]
  - CATARACT [None]
  - HERPES VIRUS INFECTION [None]
  - DRY EYE [None]
  - OSTEOPENIA [None]
  - UPPER RESPIRATORY TRACT INFECTION [None]
